FAERS Safety Report 26078495 (Version 1)
Quarter: 2025Q4

REPORT INFORMATION
  Report Type: Spontaneous
  Country: EU (occurrence: EU)
  Receive Date: 20251123
  Receipt Date: 20251123
  Transmission Date: 20260118
  Serious: Yes (Life-Threatening, Hospitalization, Other)
  Sender: AUROBINDO
  Company Number: EU-BRISTOL-MYERS SQUIBB COMPANY-2025-148841

PATIENT
  Age: 60 Year
  Sex: Male

DRUGS (9)
  1. CARBOPLATIN [Suspect]
     Active Substance: CARBOPLATIN
     Indication: Lung adenocarcinoma
     Dosage: UNK
  2. CARBOPLATIN [Suspect]
     Active Substance: CARBOPLATIN
     Dosage: CYCLE 1, DAY 22
     Route: 065
     Dates: start: 20240709, end: 20240729
  3. PEMETREXED [Suspect]
     Active Substance: PEMETREXED
     Indication: Lung adenocarcinoma
     Dosage: UNK
  4. PEMETREXED [Suspect]
     Active Substance: PEMETREXED
     Dosage: CYCLE 1, DAY 22
     Dates: start: 20240709, end: 20250729
  5. IPILIMUMAB [Suspect]
     Active Substance: IPILIMUMAB
     Indication: Lung adenocarcinoma
     Dosage: UNK
     Route: 065
  6. IPILIMUMAB [Suspect]
     Active Substance: IPILIMUMAB
     Dosage: CYCLE 1, DAY 22
     Route: 065
     Dates: start: 20240709, end: 20240729
  7. NIVOLUMAB [Suspect]
     Active Substance: NIVOLUMAB
     Indication: Lung adenocarcinoma
     Dosage: UNK
     Route: 065
  8. NIVOLUMAB [Suspect]
     Active Substance: NIVOLUMAB
     Dosage: CYCLE 1, DAY 22
     Route: 065
     Dates: start: 20240709, end: 20240729
  9. DENOSUMAB [Concomitant]
     Active Substance: DENOSUMAB
     Indication: Product used for unknown indication
     Dosage: UNK
     Route: 065

REACTIONS (10)
  - Diabetic ketoacidosis [Unknown]
  - Diabetes mellitus [Unknown]
  - Pancytopenia [Unknown]
  - Hiccups [Unknown]
  - Rash [Unknown]
  - Mucosal inflammation [Unknown]
  - Dysgeusia [Unknown]
  - Abdominal pain upper [Unknown]
  - Diarrhoea [Unknown]
  - Constipation [Unknown]

NARRATIVE: CASE EVENT DATE: 20240601
